APPROVED DRUG PRODUCT: PFIZERPEN VK
Active Ingredient: PENICILLIN V POTASSIUM
Strength: EQ 500MG BASE
Dosage Form/Route: TABLET;ORAL
Application: A061836 | Product #002
Applicant: PFIZER LABORATORIES DIV PFIZER INC
Approved: Approved Prior to Jan 1, 1982 | RLD: No | RS: No | Type: DISCN